FAERS Safety Report 10498624 (Version 1)
Quarter: 2014Q4

REPORT INFORMATION
  Report Type: Spontaneous
  Country: US (occurrence: US)
  Receive Date: 20141006
  Receipt Date: 20141006
  Transmission Date: 20150528
  Serious: Yes (Other)
  Sender: FDA-Public Use
  Company Number: US-LUNDBECK-DKLU1104074

PATIENT
  Age: 17 Month
  Sex: Female

DRUGS (1)
  1. SABRIL [Suspect]
     Active Substance: VIGABATRIN
     Indication: INFANTILE SPASMS

REACTIONS (4)
  - Seizure [Unknown]
  - Partial seizures [Unknown]
  - Drug ineffective [Unknown]
  - Somnolence [Unknown]
